FAERS Safety Report 5264100-9 (Version None)
Quarter: 2007Q1

REPORT INFORMATION
  Report Type: 
  Country: None (occurrence: None)
  Receive Date: 20070313
  Receipt Date: 20070219
  Transmission Date: 20070707
  Serious: Yes (Other)
  Sender: FDA-Public Use
  Company Number: BE-PFIZER INC-2007005245

PATIENT
  Age: 44 Year
  Sex: Female
  Weight: 60 kg

DRUGS (7)
  1. NEURONTIN [Suspect]
     Indication: NEURALGIA
     Route: 048
     Dates: start: 20061109, end: 20070102
  2. NSAID'S [Concomitant]
     Route: 048
  3. DAFALGAN [Concomitant]
     Route: 048
  4. XANAX [Concomitant]
     Route: 048
  5. MYOLASTAN [Concomitant]
     Route: 048
  6. DORSILON [Concomitant]
     Route: 048
  7. TRAMADOL HCL [Concomitant]
     Route: 048

REACTIONS (11)
  - BEDRIDDEN [None]
  - DIZZINESS [None]
  - FACE OEDEMA [None]
  - FATIGUE [None]
  - FEELING HOT [None]
  - MONOPLEGIA [None]
  - MUSCLE SPASMS [None]
  - MUSCLE TWITCHING [None]
  - MUSCULOSKELETAL STIFFNESS [None]
  - OEDEMA PERIPHERAL [None]
  - TENSION [None]
